FAERS Safety Report 9266289 (Version 2)
Quarter: 2013Q2

REPORT INFORMATION
  Report Type: Spontaneous
  Country: US (occurrence: US)
  Receive Date: 20130502
  Receipt Date: 20130607
  Transmission Date: 20140414
  Serious: Yes (Other)
  Sender: FDA-Public Use
  Company Number: US-AMGEN-USASP2013029491

PATIENT
  Age: 63 Year
  Sex: Female

DRUGS (13)
  1. PROLIA [Suspect]
     Indication: OSTEOPOROSIS POSTMENOPAUSAL
     Dosage: UNK
  2. DEXAMETHASONE [Concomitant]
  3. FLUDROCORTISONE [Concomitant]
  4. LEVOTHYROXINE [Concomitant]
  5. PHENOBARBITAL [Concomitant]
  6. LEFLUNOMIDE [Concomitant]
  7. SOTALOL [Concomitant]
  8. VITAMIN B12                        /00056201/ [Concomitant]
  9. VITAMIN B2                         /00154901/ [Concomitant]
  10. VITAMIN C                          /00008001/ [Concomitant]
  11. VITAMIN A                          /00056001/ [Concomitant]
  12. FOLIC ACID [Concomitant]
  13. MAGNESIUM [Concomitant]

REACTIONS (4)
  - Impaired healing [Unknown]
  - Injury [Unknown]
  - Wound [Unknown]
  - Cellulitis [Recovered/Resolved]
